FAERS Safety Report 19588387 (Version 2)
Quarter: 2021Q3

REPORT INFORMATION
  Report Type: Spontaneous
  Country: AU (occurrence: AU)
  Receive Date: 20210721
  Receipt Date: 20210729
  Transmission Date: 20211014
  Serious: Yes (Hospitalization)
  Sender: FDA-Public Use
  Company Number: AU-ACCORD-231892

PATIENT
  Age: 29 Year
  Sex: Male

DRUGS (3)
  1. HERBALS\LAVANDULA ANGUSTIFOLIA WHOLE [Interacting]
     Active Substance: HERBALS\LAVANDULA ANGUSTIFOLIA WHOLE
     Indication: PRODUCT USED FOR UNKNOWN INDICATION
  2. SERTRALINE [Suspect]
     Active Substance: SERTRALINE HYDROCHLORIDE
     Indication: ANXIETY
     Dosage: 50 MG DAILY
  3. BUDESONIDE/FORMOTEROL FUMARATE [Concomitant]
     Active Substance: BUDESONIDE\FORMOTEROL FUMARATE
     Indication: ASTHMA
     Dosage: TWO PUFFS
     Route: 055

REACTIONS (2)
  - Toxicity to various agents [Unknown]
  - Drug interaction [Unknown]
